FAERS Safety Report 10057497 (Version 2)
Quarter: 2014Q2

REPORT INFORMATION
  Report Type: Spontaneous
  Country: US (occurrence: US)
  Receive Date: 20140403
  Receipt Date: 20140509
  Transmission Date: 20141212
  Serious: No
  Sender: FDA-Public Use
  Company Number: US-009507513-1403USA011786

PATIENT
  Age: 63 Year
  Sex: Female

DRUGS (6)
  1. VICTRELIS [Suspect]
     Indication: HEPATITIS C
     Dosage: 4 CAP TID
     Route: 048
     Dates: start: 20140313, end: 20140407
  2. VICTRELIS [Suspect]
     Indication: HEPATITIS C
  3. PEGASYS [Suspect]
     Indication: HEPATITIS C
     Dosage: 180MCG/5ML
     Route: 058
     Dates: start: 20140313, end: 20140407
  4. PEGASYS [Suspect]
     Indication: HEPATITIS C
  5. RIBASPHERE [Suspect]
     Indication: HEPATITIS C
     Dosage: 200 MG, BID
     Route: 048
     Dates: start: 20140313, end: 20140407
  6. RIBASPHERE [Suspect]
     Indication: HEPATITIS C

REACTIONS (3)
  - Feeling cold [Not Recovered/Not Resolved]
  - Chills [Unknown]
  - Inappropriate schedule of drug administration [Unknown]
